FAERS Safety Report 15188241 (Version 1)
Quarter: 2018Q3

REPORT INFORMATION
  Report Type: Spontaneous
  Country: US (occurrence: US)
  Receive Date: 20180724
  Receipt Date: 20180724
  Transmission Date: 20181010
  Serious: No
  Sender: FDA-Public Use
  Company Number: US-009507513-1807USA004454

PATIENT
  Sex: Female

DRUGS (2)
  1. FOSAMAX [Suspect]
     Active Substance: ALENDRONATE SODIUM
     Dosage: UNK
  2. MIACALCIN [Suspect]
     Active Substance: CALCITONIN SALMON
     Dosage: UNK

REACTIONS (2)
  - Bone density decreased [Unknown]
  - Bone density increased [Unknown]
